FAERS Safety Report 20170582 (Version 1)
Quarter: 2021Q4

REPORT INFORMATION
  Report Type: Spontaneous
  Country: FR (occurrence: FR)
  Receive Date: 20211210
  Receipt Date: 20211210
  Transmission Date: 20220304
  Serious: Yes (Other)
  Sender: FDA-Public Use
  Company Number: FR-OTSUKA-2021_042414

PATIENT
  Age: 44 Year
  Sex: Male

DRUGS (1)
  1. ABILIFY [Suspect]
     Active Substance: ARIPIPRAZOLE
     Indication: Product used for unknown indication
     Dosage: HALF A 5 MG/DAY TABLET
     Route: 065

REACTIONS (8)
  - Type 2 diabetes mellitus [Unknown]
  - Nervous system disorder [Unknown]
  - Libido decreased [Unknown]
  - Urticaria [Unknown]
  - Weight increased [Unknown]
  - Depression [Unknown]
  - Myalgia [Unknown]
  - Incorrect dose administered [Unknown]
